FAERS Safety Report 9166140 (Version 2)
Quarter: 2013Q2

REPORT INFORMATION
  Report Type: Spontaneous
  Country: US (occurrence: US)
  Receive Date: 20130315
  Receipt Date: 20130410
  Transmission Date: 20140414
  Serious: Yes (Other)
  Sender: FDA-Public Use
  Company Number: US-PFIZER INC-2013075031

PATIENT
  Age: 87 Year
  Sex: Male
  Weight: 79.37 kg

DRUGS (6)
  1. CHAPSTICK CLASSICS ORIGINAL [Suspect]
     Indication: LIP DRY
     Dosage: 3 TO 4 TIMES A DAY AS NEEDED
  2. CHAPSTICK CLASSIC ORIGINAL [Suspect]
     Indication: CHAPPED LIPS
  3. SOTALOL [Concomitant]
     Indication: BLOOD CHOLESTEROL INCREASED
     Dosage: 40 MG, 2X/DAY
  4. CIPROFLOXACIN [Concomitant]
     Indication: CYSTITIS
     Dosage: 500 MG, DAILY
  5. PLAVIX [Concomitant]
     Indication: ANTICOAGULANT THERAPY
     Dosage: 75 MG, DAILY
     Dates: start: 200402
  6. AMLODIPINE BESILATE [Concomitant]
     Indication: HYPERTENSION
     Dosage: UNK, DAILY

REACTIONS (4)
  - Cardiac disorder [Unknown]
  - Wrong technique in drug usage process [Unknown]
  - Poor quality drug administered [Unknown]
  - Product quality issue [Unknown]
